FAERS Safety Report 6720636-2 (Version None)
Quarter: 2010Q2

REPORT INFORMATION
  Report Type: 
  Country: None (occurrence: None)
  Receive Date: 20100511
  Receipt Date: 20100430
  Transmission Date: 20101027
  Serious: Yes (Life-Threatening, Other)
  Sender: FDA-Public Use
  Company Number: FI-JNJFOC-20100500422

PATIENT
  Age: 5 Year
  Sex: Male

DRUGS (9)
  1. REMICADE [Suspect]
     Indication: JUVENILE ARTHRITIS
     Route: 042
  2. REMICADE [Suspect]
     Route: 042
  3. REMICADE [Suspect]
     Route: 042
  4. DITRIM DUPLO [Concomitant]
     Dosage: DOSE: ^1/2 X 1^
  5. ARAVA [Concomitant]
  6. VITAMIN D [Concomitant]
     Dosage: DOSE: ^1 X 1^
  7. LACTOBACILLUS REUTERI [Concomitant]
  8. PAMOL [Concomitant]
  9. MACROGOL [Concomitant]
     Dosage: DOSE: 3 DAY PERIOD EVERY OTHER WEEK

REACTIONS (9)
  - ADVERSE EVENT [None]
  - ANAPHYLACTOID REACTION [None]
  - ARTHROPATHY [None]
  - INFUSION RELATED REACTION [None]
  - JUVENILE ARTHRITIS [None]
  - OXYGEN SATURATION DECREASED [None]
  - SYNOVIAL CYST [None]
  - SYNOVITIS [None]
  - WEIGHT INCREASED [None]
